FAERS Safety Report 6205866-0 (Version None)
Quarter: 2009Q2

REPORT INFORMATION
  Report Type: 
  Country: None (occurrence: None)
  Receive Date: 20090527
  Receipt Date: 20090507
  Transmission Date: 20091009
  Serious: No
  Sender: FDA-Public Use
  Company Number: US-ABBOTT-09P-163-0572459-00

PATIENT
  Sex: Female
  Weight: 72.64 kg

DRUGS (5)
  1. SIMCOR [Suspect]
     Indication: BLOOD CHOLESTEROL INCREASED
     Dosage: 500/20MG
     Route: 048
     Dates: start: 20090501
  2. SIMCOR [Suspect]
     Indication: BLOOD TRIGLYCERIDES INCREASED
  3. LISINOPRIL HYDROCHLORTHIAZID [Concomitant]
     Indication: HYPERTENSION
     Dosage: 20/25MG
     Route: 048
  4. ADVIL [Concomitant]
     Indication: FLUSHING
     Route: 048
     Dates: start: 20090507
  5. ADVIL [Concomitant]
     Indication: PROPHYLAXIS

REACTIONS (4)
  - DIZZINESS [None]
  - FLUSHING [None]
  - PALPITATIONS [None]
  - PRURITUS [None]
